FAERS Safety Report 20075275 (Version 2)
Quarter: 2021Q4

REPORT INFORMATION
  Report Type: Spontaneous
  Country: US (occurrence: US)
  Receive Date: 20211116
  Receipt Date: 20211116
  Transmission Date: 20220303
  Serious: Yes (Other)
  Sender: FDA-Public Use
  Company Number: US-MYLANLABS-2021M1084518

PATIENT
  Age: 20 Year
  Sex: Male

DRUGS (5)
  1. ISOTRETINOIN [Suspect]
     Active Substance: ISOTRETINOIN
     Indication: Lupus miliaris disseminatus faciei
     Dosage: UP TO 160MG
     Route: 065
  2. ADALIMUMAB [Suspect]
     Active Substance: ADALIMUMAB
     Indication: Lupus miliaris disseminatus faciei
     Dosage: 40 MILLIGRAM, QW
     Route: 065
  3. METHOTREXATE [Suspect]
     Active Substance: METHOTREXATE
     Indication: Lupus miliaris disseminatus faciei
     Dosage: 10 MILLIGRAM, QW, LOW-DOSE
     Route: 065
  4. CYCLOSPORINE [Suspect]
     Active Substance: CYCLOSPORINE
     Indication: Lupus miliaris disseminatus faciei
     Dosage: 250 MILLIGRAM, QD
     Route: 065
  5. INFLIXIMAB [Suspect]
     Active Substance: INFLIXIMAB
     Indication: Lupus miliaris disseminatus faciei
     Dosage: 5 MILLIGRAM/KILOGRAM, AT WEEKS 0, 2 AND 6 AND THEN EVERY 8 WEEKS
     Route: 042

REACTIONS (5)
  - Rebound effect [Recovering/Resolving]
  - Lupus miliaris disseminatus faciei [Recovering/Resolving]
  - Injection site reaction [Unknown]
  - Off label use [Unknown]
  - Drug ineffective for unapproved indication [Unknown]
